FAERS Safety Report 9574750 (Version 3)
Quarter: 2014Q2

REPORT INFORMATION
  Report Type: Report from Study
  Country: US (occurrence: US)
  Receive Date: 20131001
  Receipt Date: 20140408
  Transmission Date: 20141212
  Serious: Yes (Other)
  Sender: FDA-Public Use
  Company Number: US-US-EMD SERONO, INC.-7239746

PATIENT
  Sex: Female
  Weight: 116 kg

DRUGS (2)
  1. REBIF [Suspect]
     Indication: MULTIPLE SCLEROSIS
     Route: 058
     Dates: start: 20070110
  2. ACETAMINOPHEN [Concomitant]
     Indication: PREMEDICATION

REACTIONS (4)
  - Escherichia infection [Unknown]
  - Staphylococcal osteomyelitis [Not Recovered/Not Resolved]
  - Skin ulcer [Unknown]
  - Joint injury [Unknown]
